FAERS Safety Report 11698609 (Version 1)
Quarter: 2015Q4

REPORT INFORMATION
  Report Type: Spontaneous
  Country: US (occurrence: US)
  Receive Date: 20151104
  Receipt Date: 20151104
  Transmission Date: 20160304
  Serious: No
  Sender: FDA-Public Use
  Company Number: CHPA2015US013053

PATIENT
  Age: 89 Year
  Sex: Female

DRUGS (1)
  1. VOLTAREN [Suspect]
     Active Substance: DICLOFENAC SODIUM
     Indication: PRODUCT USED FOR UNKNOWN INDICATION
     Dosage: LITTLE BIT, UNK
     Route: 047
     Dates: start: 20151102, end: 20151102

REACTIONS (4)
  - Abdominal discomfort [Not Recovered/Not Resolved]
  - Lacrimation increased [Unknown]
  - Accidental exposure to product [Unknown]
  - Eye irritation [Unknown]

NARRATIVE: CASE EVENT DATE: 20151102
